FAERS Safety Report 5563412-9 (Version None)
Quarter: 2007Q4

REPORT INFORMATION
  Report Type: 
  Country: None (occurrence: None)
  Receive Date: 20071217
  Receipt Date: 20070514
  Transmission Date: 20080405
  Serious: No
  Sender: FDA-Public Use
  Company Number: US-ASTRAZENECA-2007UW06612

PATIENT
  Age: 60 Year
  Sex: Female
  Weight: 77.1 kg

DRUGS (4)
  1. CRESTOR [Suspect]
     Route: 048
     Dates: start: 20060601, end: 20070331
  2. METFORMIN HCL [Concomitant]
  3. DIOVAN [Concomitant]
  4. INSULIN [Concomitant]

REACTIONS (2)
  - MUSCULOSKELETAL PAIN [None]
  - PAIN IN EXTREMITY [None]
